FAERS Safety Report 17062415 (Version 1)
Quarter: 2019Q4

REPORT INFORMATION
  Report Type: Spontaneous
  Country: TW (occurrence: TW)
  Receive Date: 20191122
  Receipt Date: 20191122
  Transmission Date: 20200122
  Serious: Yes (Other)
  Sender: FDA-Public Use
  Company Number: TW-SUN PHARMACEUTICAL INDUSTRIES LTD-2019RR-228365

PATIENT
  Age: 38 Year
  Sex: Female

DRUGS (6)
  1. VINCRISTINE [Suspect]
     Active Substance: VINCRISTINE
     Indication: PRECURSOR T-LYMPHOBLASTIC LEUKAEMIA ACUTE
     Dosage: UNK
     Route: 065
  2. CYTARABINE. [Suspect]
     Active Substance: CYTARABINE
     Indication: PRECURSOR T-LYMPHOBLASTIC LEUKAEMIA ACUTE
     Dosage: UNK
     Route: 065
  3. PREDNISOLONE. [Suspect]
     Active Substance: PREDNISOLONE
     Indication: PRECURSOR T-LYMPHOBLASTIC LEUKAEMIA ACUTE
     Dosage: UNK
     Route: 065
  4. DOXORUBICIN [Suspect]
     Active Substance: DOXORUBICIN
     Indication: PRECURSOR T-LYMPHOBLASTIC LEUKAEMIA ACUTE
     Dosage: UNK
     Route: 065
  5. METHOTREXATE. [Suspect]
     Active Substance: METHOTREXATE
     Indication: PRECURSOR T-LYMPHOBLASTIC LEUKAEMIA ACUTE
     Dosage: UNK
     Route: 037
  6. CYCLOPHOSPHAMIDE. [Suspect]
     Active Substance: CYCLOPHOSPHAMIDE
     Indication: PRECURSOR T-LYMPHOBLASTIC LEUKAEMIA ACUTE
     Dosage: UNK
     Route: 065

REACTIONS (3)
  - Febrile neutropenia [Unknown]
  - Neutropenia [Unknown]
  - Intussusception [Recovered/Resolved]
